FAERS Safety Report 10136582 (Version 1)
Quarter: 2014Q2

REPORT INFORMATION
  Report Type: Spontaneous
  Country: US (occurrence: None)
  Receive Date: 20140425
  Receipt Date: 20140425
  Transmission Date: 20141212
  Serious: Yes (Hospitalization)
  Sender: FDA-Public Use
  Company Number: 2014-06

PATIENT
  Age: 58 Year
  Sex: Female
  Weight: 85.91 kg

DRUGS (4)
  1. DAPSONE [Suspect]
     Indication: FUNGAL INFECTION
     Route: 048
     Dates: start: 20140126, end: 20140128
  2. INOTUZUMAB OZOGAMICIN [Suspect]
     Indication: ACUTE LYMPHOCYTIC LEUKAEMIA
     Route: 042
     Dates: start: 20131223, end: 20130123
  3. ACYCLOVIR [Concomitant]
  4. FOLIC ACID [Concomitant]

REACTIONS (5)
  - Blood culture positive [None]
  - Device related infection [None]
  - Nausea [None]
  - Chills [None]
  - Pneumonia [None]
